FAERS Safety Report 5993360-1 (Version None)
Quarter: 2008Q4

REPORT INFORMATION
  Report Type: 
  Country: None (occurrence: None)
  Receive Date: 20081209
  Receipt Date: 20080506
  Transmission Date: 20090506
  Serious: No
  Sender: FDA-Public Use
  Company Number: 08H-163-0314380-00

PATIENT
  Age: 65 Year
  Sex: Female

DRUGS (1)
  1. DEMEROL [Suspect]
     Indication: SEDATION
     Dosage: 100MG, CONTINUOUS, INTRAVENOUS
     Route: 042
     Dates: start: 20080505, end: 20080505

REACTIONS (1)
  - RESPIRATORY RATE DECREASED [None]
